FAERS Safety Report 13956835 (Version 3)
Quarter: 2017Q4

REPORT INFORMATION
  Report Type: Spontaneous
  Country: JP (occurrence: JP)
  Receive Date: 20170911
  Receipt Date: 20171006
  Transmission Date: 20180320
  Serious: Yes (Hospitalization)
  Sender: FDA-Public Use
  Company Number: JP-GILEAD-2017-0292400

PATIENT
  Age: 72 Year
  Sex: Female

DRUGS (9)
  1. HARVONI [Suspect]
     Active Substance: LEDIPASVIR\SOFOSBUVIR
     Indication: CHRONIC HEPATITIS C
     Dosage: 1 DF, UNK
     Route: 048
     Dates: start: 20170522, end: 20170703
  2. MONILAC [Concomitant]
     Active Substance: LACTULOSE
  3. VITAMEDIN                          /00176001/ [Concomitant]
  4. LANSOPRAZOLE. [Concomitant]
     Active Substance: LANSOPRAZOLE
  5. PROMAC                             /01312301/ [Concomitant]
     Active Substance: POLAPREZINC
  6. SIGMART [Concomitant]
     Active Substance: NICORANDIL
  7. CONIEL [Concomitant]
     Active Substance: BENIDIPINE HYDROCHLORIDE
  8. NITROPEN [Concomitant]
     Active Substance: NITROGLYCERIN
  9. BLOPRESS [Concomitant]
     Active Substance: CANDESARTAN CILEXETIL

REACTIONS (1)
  - Renal impairment [Recovered/Resolved]

NARRATIVE: CASE EVENT DATE: 20170706
